FAERS Safety Report 10888775 (Version 1)
Quarter: 2015Q1

REPORT INFORMATION
  Report Type: Spontaneous
  Country: US (occurrence: US)
  Receive Date: 20150305
  Receipt Date: 20150305
  Transmission Date: 20150721
  Serious: Yes (Hospitalization, Other)
  Sender: FDA-Public Use
  Company Number: US-PFIZER INC-2015078943

PATIENT
  Age: 75 Year
  Sex: Female
  Weight: 66 kg

DRUGS (3)
  1. LITHIUM [Concomitant]
     Active Substance: LITHIUM CARBONATE
     Indication: BIPOLAR DISORDER
     Dosage: 300 MG, 2X/DAY
  2. METFORMIN [Concomitant]
     Active Substance: METFORMIN HYDROCHLORIDE
     Indication: DIABETES MELLITUS
     Dosage: 1000 MG, 2X/DAY
  3. SERTRALINE HCL [Suspect]
     Active Substance: SERTRALINE HYDROCHLORIDE
     Dosage: 200 MG, 1X/DAY,  (100 MG TWO TABLETS ONCE A DAY)

REACTIONS (6)
  - Nervousness [Unknown]
  - Malaise [Unknown]
  - Feeling cold [Unknown]
  - Poisoning [Unknown]
  - Nausea [Unknown]
  - Gastrointestinal haemorrhage [Recovered/Resolved]
